FAERS Safety Report 8050564-4 (Version None)
Quarter: 2012Q1

REPORT INFORMATION
  Report Type: 
  Country: None (occurrence: None)
  Receive Date: 20120117
  Receipt Date: 20120110
  Transmission Date: 20120608
  Serious: Yes (Hospitalization)
  Sender: FDA-Public Use
  Company Number: FR-PFIZER INC-2012006549

PATIENT
  Age: 12 Year
  Sex: Male

DRUGS (12)
  1. CYTARABINE [Suspect]
     Dosage: 47 MG, CYCLIC
     Route: 042
     Dates: start: 20111206, end: 20111221
  2. DEPO-MEDROL [Suspect]
     Dosage: 20 MG, CYCLIC
     Route: 037
     Dates: start: 20111108, end: 20111207
  3. CYTARABINE [Suspect]
     Dosage: 30 MG, CYCLIC
     Route: 037
     Dates: start: 20111108, end: 20111207
  4. ELDISINE [Suspect]
     Dosage: 4.7 MG, CYCLIC
     Route: 042
     Dates: start: 20111107, end: 20111121
  5. THIOGUANINE [Suspect]
     Dosage: 120 MG, ALTERNATE DAY
     Route: 048
     Dates: start: 20111206, end: 20111221
  6. THIOGUANINE [Suspect]
     Dosage: 90 MG, ALTERNATE DAY
     Route: 048
     Dates: start: 20111206, end: 20111221
  7. DEXAMETHASONE [Suspect]
     Dosage: 3.5 MG, 1X/DAY
     Route: 048
     Dates: start: 20111107, end: 20111120
  8. ETOPOSIDE [Suspect]
     Dosage: 236 MG, CYCLIC
     Route: 042
     Dates: start: 20111205, end: 20111219
  9. METHOTREXATE [Suspect]
     Dosage: 15 MG, CYCLIC
     Route: 037
     Dates: start: 20111108, end: 20111207
  10. ONDANSETRON [Suspect]
     Dosage: 4 MG, CYCLIC
     Route: 042
     Dates: start: 20111107, end: 20111219
  11. KIDROLASE [Suspect]
     Dosage: 9400 IU, CYCLIC
     Route: 042
     Dates: start: 20111109, end: 20111121
  12. DOXORUBICIN HCL [Suspect]
     Dosage: 39.5 MG, CYCLIC
     Route: 042
     Dates: start: 20111107, end: 20111121

REACTIONS (3)
  - VENOOCCLUSIVE LIVER DISEASE [None]
  - HEPATIC STEATOSIS [None]
  - FEBRILE BONE MARROW APLASIA [None]
